FAERS Safety Report 22052876 (Version 1)
Quarter: 2023Q1

REPORT INFORMATION
  Report Type: Spontaneous
  Country: CA (occurrence: CA)
  Receive Date: 20230302
  Receipt Date: 20230302
  Transmission Date: 20230418
  Serious: Yes (Hospitalization, Other)
  Sender: FDA-Public Use
  Company Number: None

PATIENT
  Sex: Female

DRUGS (19)
  1. FLUOXETINE [Interacting]
     Active Substance: FLUOXETINE HYDROCHLORIDE
     Indication: Major depression
     Route: 048
  2. FUROSEMIDE [Interacting]
     Active Substance: FUROSEMIDE
     Indication: Product used for unknown indication
     Dosage: AS REQUIRED
     Route: 048
  3. QUETIAPINE [Interacting]
     Active Substance: QUETIAPINE
     Indication: Major depression
     Dosage: 1 EVERY 1 DAYS
     Route: 048
  4. ATENOLOL [Interacting]
     Active Substance: ATENOLOL
     Indication: Product used for unknown indication
     Route: 048
  5. RISPERIDONE [Interacting]
     Active Substance: RISPERIDONE
     Indication: Affective disorder
     Route: 048
  6. ALBUTEROL [Concomitant]
     Active Substance: ALBUTEROL
  7. TIOTROPIUM BROMIDE [Concomitant]
     Active Substance: TIOTROPIUM BROMIDE
  8. CYCLOBENZAPRINE [Concomitant]
     Active Substance: CYCLOBENZAPRINE
  9. DIVALPROEX SODIUM [Concomitant]
     Active Substance: DIVALPROEX SODIUM
  10. DOXEPIN [Concomitant]
     Active Substance: DOXEPIN
  11. ESTRADIOL [Concomitant]
     Active Substance: ESTRADIOL
  12. GABAPENTIN [Concomitant]
     Active Substance: GABAPENTIN
  13. LORAZEPAM [Concomitant]
     Active Substance: LORAZEPAM
     Route: 065
  14. METHADONE [Concomitant]
     Active Substance: METHADONE HYDROCHLORIDE
  15. NAPROXEN [Concomitant]
     Active Substance: NAPROXEN
  16. FLUOXETINE [Interacting]
     Active Substance: FLUOXETINE HYDROCHLORIDE
     Indication: Major depression
     Route: 048
  17. FLUOXETINE [Interacting]
     Active Substance: FLUOXETINE HYDROCHLORIDE
     Indication: Major depression
     Route: 048
  18. FLUOXETINE [Interacting]
     Active Substance: FLUOXETINE HYDROCHLORIDE
     Indication: Major depression
     Route: 048
  19. QUETIAPINE [Interacting]
     Active Substance: QUETIAPINE
     Indication: Major depression
     Dosage: 1 EVERY 1 DAYS
     Route: 048

REACTIONS (4)
  - Depressed level of consciousness [Recovering/Resolving]
  - Drug interaction [Unknown]
  - Respiratory depression [Recovering/Resolving]
  - Toxicity to various agents [Unknown]
